FAERS Safety Report 9700829 (Version 1)
Quarter: 2013Q4

REPORT INFORMATION
  Report Type: Spontaneous
  Country: ES (occurrence: None)
  Receive Date: 20131119
  Receipt Date: 20131119
  Transmission Date: 20140711
  Serious: Yes (Other)
  Sender: FDA-Public Use
  Company Number: E2B_7248757

PATIENT
  Age: 61 Year
  Sex: Female

DRUGS (1)
  1. EUTIROX [Suspect]
     Indication: PRODUCT USED FOR UNKNOWN INDICATION
     Route: 048
     Dates: start: 2013

REACTIONS (3)
  - Hyperthyroidism [None]
  - Tachycardia [None]
  - Medication error [None]
